FAERS Safety Report 6804541-9 (Version None)
Quarter: 2010Q2

REPORT INFORMATION
  Report Type: 
  Country: None (occurrence: None)
  Receive Date: 20100628
  Receipt Date: 20100623
  Transmission Date: 20101027
  Serious: Yes (Life-Threatening, Hospitalization, Other)
  Sender: FDA-Public Use
  Company Number: US-MERCK-1004USA04678

PATIENT
  Age: 13 Year
  Sex: Female
  Weight: 58 kg

DRUGS (10)
  1. SINGULAIR [Suspect]
     Indication: HYPERSENSITIVITY
     Route: 048
     Dates: start: 20100301
  2. SINGULAIR [Suspect]
     Route: 048
  3. SINGULAIR [Suspect]
     Indication: ASTHMA
     Route: 048
     Dates: start: 20100301
  4. SINGULAIR [Suspect]
     Route: 048
  5. ADVAIR DISKUS 100/50 [Concomitant]
     Indication: ASTHMA
     Route: 048
     Dates: start: 20050501
  6. PROAIR HFA [Concomitant]
     Indication: ASTHMA
     Route: 048
     Dates: start: 20090401
  7. FEXOFENADINE HYDROCHLORIDE [Concomitant]
     Indication: HYPERSENSITIVITY
     Route: 048
     Dates: start: 20031001
  8. FLUTICASONE [Concomitant]
     Route: 055
     Dates: start: 20040101
  9. SINGULAIR [Suspect]
     Route: 048
     Dates: start: 20041001
  10. SINGULAIR [Suspect]
     Route: 048
     Dates: start: 20041001

REACTIONS (4)
  - ATTENTION-SEEKING BEHAVIOUR [None]
  - INTENTIONAL OVERDOSE [None]
  - OVERDOSE [None]
  - SUICIDAL BEHAVIOUR [None]
